FAERS Safety Report 4926628-8 (Version None)
Quarter: 2006Q1

REPORT INFORMATION
  Report Type: 
  Country: None (occurrence: None)
  Receive Date: 20060228
  Receipt Date: 20050512
  Transmission Date: 20060701
  Serious: No
  Sender: FDA-Public Use
  Company Number: US-GLAXOSMITHKLINE-A0558374A

PATIENT
  Age: 56 Year
  Sex: Female

DRUGS (6)
  1. LAMICTAL [Suspect]
     Indication: BIPOLAR DISORDER
     Dosage: 25MG PER DAY
     Route: 048
     Dates: start: 20050511
  2. SYNTHROID [Concomitant]
  3. CYTOMEL [Concomitant]
  4. VICOPROFEN [Concomitant]
  5. NEURONTIN [Concomitant]
  6. ATIVAN [Concomitant]

REACTIONS (1)
  - VOMITING [None]
